FAERS Safety Report 20170968 (Version 2)
Quarter: 2022Q1

REPORT INFORMATION
  Report Type: Report from Study
  Country: FR (occurrence: None)
  Receive Date: 20211210
  Receipt Date: 20220131
  Transmission Date: 20220423
  Serious: Yes (Hospitalization)
  Sender: FDA-Public Use
  Company Number: FR-ROCHE-2931048

PATIENT
  Age: 77 Year
  Sex: Male
  Weight: 58.5 kg

DRUGS (7)
  1. BEVACIZUMAB [Suspect]
     Active Substance: BEVACIZUMAB
     Indication: Neoplasm
     Dosage: CYCLE 1
     Route: 042
     Dates: start: 20210906, end: 20211011
  2. BEVACIZUMAB [Suspect]
     Active Substance: BEVACIZUMAB
     Dosage: LAST CYCLE BEFORE SAE CYCLE NO. 5
     Route: 042
     Dates: start: 20211025, end: 20211108
  3. FLUOROURACIL [Concomitant]
     Active Substance: FLUOROURACIL
     Route: 042
     Dates: start: 20210906, end: 20210922
  4. FLUOROURACIL [Concomitant]
     Active Substance: FLUOROURACIL
     Dates: start: 20210906, end: 20210906
  5. IRINOTECAN [Concomitant]
     Active Substance: IRINOTECAN
     Route: 042
     Dates: start: 20210906
  6. LEUCOVORIN CALCIUM [Concomitant]
     Active Substance: LEUCOVORIN CALCIUM
     Route: 042
     Dates: start: 20210906
  7. LEVOLEUCOVORIN CALCIUM [Concomitant]
     Active Substance: LEVOLEUCOVORIN CALCIUM
     Route: 042

REACTIONS (3)
  - Complication associated with device [Recovered/Resolved]
  - Device occlusion [Recovered/Resolved]
  - Anaemia [Recovered/Resolved]

NARRATIVE: CASE EVENT DATE: 20211002
